FAERS Safety Report 23630542 (Version 1)
Quarter: 2024Q1

REPORT INFORMATION
  Report Type: Spontaneous
  Country: IT (occurrence: IT)
  Receive Date: 20240314
  Receipt Date: 20240314
  Transmission Date: 20240410
  Serious: Yes (Hospitalization)
  Sender: FDA-Public Use
  Company Number: IT-SUN PHARMACEUTICAL INDUSTRIES LTD-2024RR-435674

PATIENT
  Age: 13 Year
  Sex: Female
  Weight: 57 kg

DRUGS (2)
  1. ALPRAZOLAM [Suspect]
     Active Substance: ALPRAZOLAM
     Indication: Anxiety
     Dosage: 14.25 MILLIGRAM, IN TOTAL
     Route: 048
     Dates: start: 20231101, end: 20231101
  2. BUTYLSCOPOLAMINE BROMIDE [Concomitant]
     Active Substance: BUTYLSCOPOLAMINE BROMIDE
     Indication: Dysmenorrhoea
     Dosage: 10 MILLIGRAM
     Route: 048
     Dates: start: 20231101, end: 20231101

REACTIONS (3)
  - Disorientation [Recovered/Resolved]
  - Disorganised speech [Recovered/Resolved]
  - Disturbance in attention [Recovered/Resolved]

NARRATIVE: CASE EVENT DATE: 20231102
